FAERS Safety Report 24713203 (Version 1)
Quarter: 2024Q4

REPORT INFORMATION
  Report Type: Spontaneous
  Country: US (occurrence: US)
  Receive Date: 20241209
  Receipt Date: 20241209
  Transmission Date: 20250114
  Serious: No
  Sender: REGENERON
  Company Number: US-REGENERON PHARMACEUTICALS, INC.-2023-148303

PATIENT
  Sex: Male

DRUGS (1)
  1. EYLEA [Suspect]
     Active Substance: AFLIBERCEPT
     Indication: Neovascular age-related macular degeneration
     Dosage: 2 MG, EVERY 8 WEEKS, FORMULATION: PFS GERRESHEIMER; STRENGTH: 2MG/0.05ML
     Dates: start: 20221201

REACTIONS (1)
  - Eye abrasion [Unknown]

NARRATIVE: CASE EVENT DATE: 20231205
